FAERS Safety Report 25560934 (Version 2)
Quarter: 2025Q4

REPORT INFORMATION
  Report Type: Spontaneous
  Country: US (occurrence: US)
  Receive Date: 20250715
  Receipt Date: 20251007
  Transmission Date: 20260117
  Serious: Yes (Hospitalization, Other)
  Sender: NOVO NORDISK
  Company Number: US-NOVOPROD-1426570

PATIENT
  Age: 49 Year
  Sex: Female
  Weight: 129.25 kg

DRUGS (16)
  1. OZEMPIC [Suspect]
     Active Substance: SEMAGLUTIDE
     Indication: Type 2 diabetes mellitus
     Dosage: 0.5 MG, QW
     Dates: start: 20221018, end: 20231016
  2. OZEMPIC [Suspect]
     Active Substance: SEMAGLUTIDE
     Indication: Obesity
  3. DEXAMETHASONE [Concomitant]
     Active Substance: DEXAMETHASONE
     Indication: Steroid therapy
     Dosage: 4 MG
     Dates: start: 20230614, end: 20240601
  4. FLUOXETINE [Concomitant]
     Active Substance: FLUOXETINE HYDROCHLORIDE
     Indication: Antidepressant therapy
     Dosage: 20 MG
     Dates: start: 20221109, end: 20230102
  5. FLUTICASONE [Concomitant]
     Active Substance: FLUTICASONE
     Indication: Product used for unknown indication
     Dosage: UNK
     Dates: start: 20221018
  6. LISINOPRIL [Concomitant]
     Active Substance: LISINOPRIL
     Indication: Hypertension
     Dosage: 20 MG
     Dates: start: 20221123, end: 20230911
  7. LOVASTATIN [Concomitant]
     Active Substance: LOVASTATIN
     Indication: Blood cholesterol increased
     Dosage: 20 MG
     Dates: start: 20220406, end: 20221118
  8. MELOXICAM [Concomitant]
     Active Substance: MELOXICAM
     Indication: Inflammation
     Dosage: 15 MG
     Dates: start: 20220824, end: 20230511
  9. METFORMIN [Concomitant]
     Active Substance: METFORMIN HYDROCHLORIDE
     Indication: Type 2 diabetes mellitus
     Dosage: 500 MG
     Dates: start: 20220825, end: 20221122
  10. METRONIDAZOLE [Concomitant]
     Active Substance: METRONIDAZOLE
     Indication: Antibiotic therapy
     Dosage: UNK
     Dates: start: 20230105, end: 20230112
  11. MUPIROCIN [Concomitant]
     Active Substance: MUPIROCIN
     Indication: Antibiotic therapy
     Dosage: 2 %
     Dates: start: 20230817, end: 20231030
  12. NEOMYCIN [Concomitant]
     Active Substance: NEOMYCIN
     Indication: Antibiotic therapy
     Dosage: 500 MG
     Dates: start: 20230105, end: 20230201
  13. NYSTATIN [Concomitant]
     Active Substance: NYSTATIN
     Indication: Antibiotic therapy
     Dosage: UNK
     Dates: start: 20230928, end: 20231005
  14. FLUOROURACIL [Concomitant]
     Active Substance: FLUOROURACIL
     Indication: Chemotherapy
     Dosage: UNK
     Dates: start: 20230629, end: 20240601
  15. LEUCOVORIN CALCIUM [Concomitant]
     Active Substance: LEUCOVORIN CALCIUM
     Indication: Chemotherapy
     Dosage: UNK
     Dates: start: 20221018, end: 20230921
  16. MIRALAX [Concomitant]
     Active Substance: POLYETHYLENE GLYCOL 3350
     Indication: Constipation
     Dosage: UNK
     Dates: start: 20230105

REACTIONS (7)
  - Oesophagitis [Recovered/Resolved]
  - Vomiting [Recovered/Resolved]
  - Pancreatitis [Not Recovered/Not Resolved]
  - Depression [Unknown]
  - Anxiety [Unknown]
  - Decreased appetite [Recovered/Resolved]
  - Off label use [Unknown]

NARRATIVE: CASE EVENT DATE: 20221001
